FAERS Safety Report 19748194 (Version 7)
Quarter: 2021Q4

REPORT INFORMATION
  Report Type: Spontaneous
  Country: BR (occurrence: BR)
  Receive Date: 20210826
  Receipt Date: 20211230
  Transmission Date: 20220304
  Serious: Yes (Life-Threatening, Hospitalization, Other)
  Sender: FDA-Public Use
  Company Number: NVSC2021BR189808

PATIENT
  Age: 66 Year
  Sex: Female

DRUGS (5)
  1. GLYCOPYRROLATE [Suspect]
     Active Substance: GLYCOPYRROLATE
     Indication: Traumatic lung injury
     Dosage: 50 UG (OVER 4 OR 5 YEAR AGO)
     Route: 055
  2. GLYCOPYRROLATE [Suspect]
     Active Substance: GLYCOPYRROLATE
     Indication: Infectious pleural effusion
  3. GLYCOPYRROLATE [Suspect]
     Active Substance: GLYCOPYRROLATE
     Indication: Dyspnoea
  4. GLYCOPYRROLATE [Suspect]
     Active Substance: GLYCOPYRROLATE
     Indication: Cough
  5. CHLOROQUIN [Concomitant]
     Indication: Product used for unknown indication
     Dosage: UNK
     Route: 065

REACTIONS (27)
  - Near death experience [Unknown]
  - Renal disorder [Unknown]
  - Drug dependence [Not Recovered/Not Resolved]
  - Myocardial infarction [Unknown]
  - Infarction [Unknown]
  - Rheumatoid arthritis [Unknown]
  - Sjogren^s syndrome [Unknown]
  - Systemic lupus erythematosus [Not Recovered/Not Resolved]
  - Coronary artery occlusion [Unknown]
  - Crying [Not Recovered/Not Resolved]
  - Fatigue [Not Recovered/Not Resolved]
  - Lung disorder [Not Recovered/Not Resolved]
  - Cough [Not Recovered/Not Resolved]
  - Suspected counterfeit product [Not Recovered/Not Resolved]
  - Pyrexia [Recovered/Resolved]
  - Tremor [Unknown]
  - Fibromyalgia [Unknown]
  - Tooth loss [Unknown]
  - Spinal disorder [Not Recovered/Not Resolved]
  - Corneal lesion [Unknown]
  - Dysstasia [Not Recovered/Not Resolved]
  - Fall [Unknown]
  - Pain [Not Recovered/Not Resolved]
  - Weight increased [Unknown]
  - Product label issue [Unknown]
  - Product use in unapproved indication [Unknown]
  - Drug ineffective [Not Recovered/Not Resolved]

NARRATIVE: CASE EVENT DATE: 20210818
